FAERS Safety Report 5930748-9 (Version None)
Quarter: 2008Q4

REPORT INFORMATION
  Report Type: 
  Country: None (occurrence: None)
  Receive Date: 20081022
  Receipt Date: 20081006
  Transmission Date: 20090506
  Serious: Yes (Life-Threatening, Hospitalization)
  Sender: FDA-Public Use
  Company Number: DSA_32095_2008

PATIENT
  Age: 85 Year
  Sex: Male

DRUGS (7)
  1. ENALAPRIL MALEATE [Suspect]
     Indication: HYPERTENSION
     Dosage: (DF ORAL)
     Route: 048
     Dates: start: 20080531, end: 20080610
  2. ENALAPRIL MALEATE [Concomitant]
  3. LASIX [Concomitant]
  4. HARNAL [Concomitant]
  5. VESICARE /01735902/ [Concomitant]
  6. MICARDIS [Concomitant]
  7. DOXAZOSIN MESYLATE [Concomitant]

REACTIONS (6)
  - BLOOD PRESSURE DECREASED [None]
  - DRUG INEFFECTIVE [None]
  - EOSINOPHILIC PNEUMONIA [None]
  - INTERSTITIAL LUNG DISEASE [None]
  - PNEUMONIA PRIMARY ATYPICAL [None]
  - PRODUCT QUALITY ISSUE [None]
